FAERS Safety Report 5812210-7 (Version None)
Quarter: 2008Q3

REPORT INFORMATION
  Report Type: 
  Country: None (occurrence: None)
  Receive Date: 20080714
  Receipt Date: 20080703
  Transmission Date: 20090109
  Serious: Yes (Hospitalization)
  Sender: FDA-Public Use
  Company Number: 2008SP013584

PATIENT
  Age: 30 Year
  Sex: Female

DRUGS (1)
  1. NOXAFIL [Suspect]
     Indication: BRONCHOPULMONARY ASPERGILLOSIS
     Dosage: 400 MG; BID
     Dates: start: 20080509, end: 20080519

REACTIONS (3)
  - BRONCHOPULMONARY ASPERGILLOSIS [None]
  - CONDITION AGGRAVATED [None]
  - DRUG INEFFECTIVE [None]
